FAERS Safety Report 13775479 (Version 1)
Quarter: 2017Q3

REPORT INFORMATION
  Report Type: Spontaneous
  Country: US (occurrence: US)
  Receive Date: 20170721
  Receipt Date: 20170721
  Transmission Date: 20171127
  Serious: Yes (Hospitalization)
  Sender: FDA-Public Use
  Company Number: US-BRACCO-014782

PATIENT
  Sex: Female

DRUGS (1)
  1. BARIUM [Suspect]
     Active Substance: BARIUM
     Indication: BARIUM SWALLOW
     Route: 048

REACTIONS (3)
  - Lung infiltration [Recovering/Resolving]
  - Aspiration [Recovering/Resolving]
  - Pneumonitis chemical [Recovered/Resolved]
